FAERS Safety Report 25114415 (Version 2)
Quarter: 2025Q3

REPORT INFORMATION
  Report Type: Spontaneous
  Country: US (occurrence: US)
  Receive Date: 20250324
  Receipt Date: 20250809
  Transmission Date: 20251020
  Serious: Yes (Hospitalization)
  Sender: ALEXION PHARMACEUTICALS
  Company Number: IN-ASTRAZENECA-202503IND014458IN

PATIENT
  Age: 60 Year
  Sex: Female

DRUGS (14)
  1. IMFINZI [Suspect]
     Active Substance: DURVALUMAB
     Route: 065
  2. KORLYM [Suspect]
     Active Substance: MIFEPRISTONE
     Indication: Cushing^s syndrome
     Dosage: 600 MILLIGRAM, QD
     Dates: start: 20201109, end: 202105
  3. KORLYM [Suspect]
     Active Substance: MIFEPRISTONE
  4. AMLODIPINE [Concomitant]
     Active Substance: AMLODIPINE BESYLATE
     Route: 065
  5. BISOPROLOL [Concomitant]
     Active Substance: BISOPROLOL
  6. FENOFIBRATE [Concomitant]
     Active Substance: FENOFIBRATE
     Route: 065
  7. HYDROCHLOROTHIAZIDE [Concomitant]
     Active Substance: HYDROCHLOROTHIAZIDE
  8. LISINOPRIL [Concomitant]
     Active Substance: LISINOPRIL
  9. METFORMIN [Concomitant]
     Active Substance: METFORMIN HYDROCHLORIDE
  10. ROSUVASTATIN [Concomitant]
     Active Substance: ROSUVASTATIN
  11. PIOGLITAZONE [Concomitant]
     Active Substance: PIOGLITAZONE
  12. ATORVASTATIN [Concomitant]
     Active Substance: ATORVASTATIN
  13. STIOLTO RESPIMAT [Concomitant]
     Active Substance: OLODATEROL HYDROCHLORIDE\TIOTROPIUM BROMIDE MONOHYDRATE
  14. TRESIBA [Concomitant]
     Active Substance: INSULIN DEGLUDEC

REACTIONS (8)
  - Dyspnoea [Unknown]
  - Dysphagia [Unknown]
  - Myalgia [Unknown]
  - Muscle spasms [Unknown]
  - Constipation [Unknown]
  - Heart rate irregular [Unknown]
  - Sleep apnoea syndrome [Unknown]
  - Fatigue [Unknown]

NARRATIVE: CASE EVENT DATE: 20240101
